FAERS Safety Report 5205824-9 (Version None)
Quarter: 2007Q1

REPORT INFORMATION
  Report Type: 
  Country: None (occurrence: None)
  Receive Date: 20070105
  Receipt Date: 20070105
  Transmission Date: 20070707
  Serious: Yes (Life-Threatening, Disabling, Other)
  Sender: FDA-Public Use
  Company Number: None

PATIENT
  Age: 39 Year
  Sex: Male
  Weight: 82.5547 kg

DRUGS (2)
  1. TEGRETOL [Suspect]
     Indication: TRIGEMINAL NEURALGIA
     Dates: start: 19990701, end: 19990708
  2. TRILEPTAL [Suspect]
     Dates: start: 20020701, end: 20020702

REACTIONS (4)
  - DRUG HYPERSENSITIVITY [None]
  - LYMPHADENOPATHY [None]
  - PYREXIA [None]
  - RASH GENERALISED [None]
